FAERS Safety Report 17577618 (Version 1)
Quarter: 2020Q1

REPORT INFORMATION
  Report Type: Spontaneous
  Country: US (occurrence: US)
  Receive Date: 20200312
  Receipt Date: 20200312
  Transmission Date: 20200409
  Serious: Yes (Hospitalization)
  Sender: FDA-Public Use
  Company Number: None

PATIENT
  Age: 56 Year
  Sex: Male

DRUGS (5)
  1. BENAZEPRIL [Concomitant]
     Active Substance: BENAZEPRIL HYDROCHLORIDE
  2. ABSOLUTE XTRACTS ^GSC^ CANNABIS OIL VAPE CARTRIDGE [Suspect]
     Active Substance: CANNABIDIOL\DEVICE\HERBALS
  3. ALFUZOSIN [Concomitant]
     Active Substance: ALFUZOSIN
  4. TRUVADA [Concomitant]
     Active Substance: EMTRICITABINE\TENOFOVIR DISOPROXIL FUMARATE
  5. GENERAL MULTIVITAMIN FOR MEN [Concomitant]

REACTIONS (3)
  - Wheezing [None]
  - Dyspnoea [None]
  - Device defective [None]
